FAERS Safety Report 5735653-9 (Version None)
Quarter: 2008Q2

REPORT INFORMATION
  Report Type: 
  Country: None (occurrence: None)
  Receive Date: 20080512
  Receipt Date: 20080501
  Transmission Date: 20081010
  Serious: Yes (Other)
  Sender: FDA-Public Use
  Company Number: GB-PFIZER INC-2008038688

PATIENT

DRUGS (1)
  1. AROMASIN [Suspect]
     Route: 048

REACTIONS (1)
  - VENTRICULAR TACHYCARDIA [None]
